FAERS Safety Report 7780483-X (Version None)
Quarter: 2011Q3

REPORT INFORMATION
  Report Type: 
  Country: None (occurrence: None)
  Receive Date: 20110923
  Receipt Date: 20110921
  Transmission Date: 20111222
  Serious: Yes (Hospitalization)
  Sender: FDA-Public Use
  Company Number: DAV-CLO-11-08

PATIENT
  Age: 88 Year
  Sex: Female

DRUGS (6)
  1. LISINOPRIL [Concomitant]
  2. CHLORTHALIDONE [Concomitant]
  3. HYDRALAZINE HCL [Concomitant]
  4. METOPROLOL TARTRATE [Concomitant]
  5. DILTIAZEM HCL [Concomitant]
  6. CLONIDINE [Suspect]
     Indication: HYPERTENSION
     Dosage: 0.3 MG. WEEKLY

REACTIONS (5)
  - NODAL RHYTHM [None]
  - HEART RATE DECREASED [None]
  - PRESYNCOPE [None]
  - BLOOD PRESSURE SYSTOLIC INCREASED [None]
  - FATIGUE [None]
